FAERS Safety Report 10675613 (Version 1)
Quarter: 2014Q4

REPORT INFORMATION
  Report Type: Spontaneous
  Country: US (occurrence: US)
  Receive Date: 20141224
  Receipt Date: 20141224
  Transmission Date: 20150529
  Serious: Yes (Death, Other)
  Sender: FDA-Public Use
  Company Number: US-PFIZER INC-2014356233

PATIENT
  Age: 72 Year
  Sex: Female

DRUGS (4)
  1. GELFOAM [Suspect]
     Active Substance: GELATIN\THROMBIN HUMAN
     Dosage: UNK
     Route: 065
     Dates: start: 20140710, end: 20140710
  2. SURGIFOAM AGS [Concomitant]
     Dosage: UNK
     Route: 061
     Dates: start: 20140710, end: 20140710
  3. THROMBIN-JMI [Suspect]
     Active Substance: THROMBIN
     Indication: HAEMOSTASIS
     Dosage: UNK
     Route: 061
     Dates: start: 20140710, end: 20140710
  4. EVITHROM [Concomitant]
     Active Substance: THROMBIN HUMAN
     Indication: CEREBRAL HAEMORRHAGE
     Dosage: UNK
     Route: 061
     Dates: start: 20140710, end: 20140710

REACTIONS (11)
  - Off label use [Unknown]
  - Embolism [Fatal]
  - Cardiac arrest [Fatal]
  - Thrombocytopenia [Fatal]
  - Hypocoagulable state [Fatal]
  - Pulmonary alveolar haemorrhage [Fatal]
  - Subgaleal haematoma [Fatal]
  - Pulmonary hypertension [Fatal]
  - Coronary artery disease [Fatal]
  - Cardiomegaly [Fatal]
  - Right ventricular failure [Fatal]
